FAERS Safety Report 5272229-4 (Version None)
Quarter: 2007Q1

REPORT INFORMATION
  Report Type: 
  Country: None (occurrence: None)
  Receive Date: 20070319
  Receipt Date: 20070306
  Transmission Date: 20070707
  Serious: Yes (Other)
  Sender: FDA-Public Use
  Company Number: 231619K07USA

PATIENT
  Age: 46 Year
  Sex: Female
  Weight: 65.318 kg

DRUGS (4)
  1. REBIF [Suspect]
     Indication: MULTIPLE SCLEROSIS
     Dosage: 44 MCG, 3 IN 1 WEEKS, SUBCUTANEOUS
     Route: 058
     Dates: start: 20060104
  2. LISINOPRIL [Concomitant]
  3. DOXAZOSIN (DOXAZOSIN/00639301/) [Concomitant]
  4. SPIRONOLACTONE [Concomitant]

REACTIONS (4)
  - BACK PAIN [None]
  - HYPOKINESIA [None]
  - NEOPLASM [None]
  - SPINAL DISORDER [None]
